FAERS Safety Report 25071309 (Version 1)
Quarter: 2025Q1

REPORT INFORMATION
  Report Type: Spontaneous
  Country: US (occurrence: US)
  Receive Date: 20250312
  Receipt Date: 20250312
  Transmission Date: 20250409
  Serious: No
  Sender: MYLAN
  Company Number: US-MYLANLABS-2025M1019549

PATIENT
  Age: 74 Year
  Sex: Female
  Weight: 56.699 kg

DRUGS (4)
  1. LATANOPROST [Suspect]
     Active Substance: LATANOPROST
     Indication: Glaucoma
  2. LATANOPROST [Suspect]
     Active Substance: LATANOPROST
     Route: 047
  3. LATANOPROST [Suspect]
     Active Substance: LATANOPROST
     Route: 047
  4. LATANOPROST [Suspect]
     Active Substance: LATANOPROST

REACTIONS (1)
  - Eye irritation [Recovering/Resolving]

NARRATIVE: CASE EVENT DATE: 20250201
